FAERS Safety Report 4268546-7 (Version None)
Quarter: 2004Q1

REPORT INFORMATION
  Report Type: 
  Country: None (occurrence: None)
  Receive Date: 20040108
  Receipt Date: 20040105
  Transmission Date: 20041129
  Serious: Yes (Hospitalization, Other)
  Sender: FDA-Public Use
  Company Number: 2004-01-0065

PATIENT
  Age: 54 Year
  Sex: Male
  Weight: 59.8748 kg

DRUGS (5)
  1. PEG-INTRON [Suspect]
     Indication: HEPATITIS C
     Dosage: 96 MCG QWE SUBCUTANEOUS
     Route: 058
     Dates: start: 20021206, end: 20031017
  2. REBETOL [Suspect]
     Indication: HEPATITIS C
     Dosage: 1000 MG QD ORAL
     Route: 048
     Dates: start: 20021206, end: 20031017
  3. MULTI-VITAMINS [Concomitant]
  4. ANTIDEPRESSANTS (NOS) [Concomitant]
  5. EPOGEN [Concomitant]

REACTIONS (6)
  - ANAEMIA [None]
  - CARDIAC FAILURE CONGESTIVE [None]
  - CARDIOMYOPATHY [None]
  - DEPRESSION [None]
  - FEELING ABNORMAL [None]
  - TREATMENT NONCOMPLIANCE [None]
